FAERS Safety Report 11431567 (Version 1)
Quarter: 2015Q3

REPORT INFORMATION
  Report Type: Spontaneous
  Country: US (occurrence: US)
  Receive Date: 20150828
  Receipt Date: 20150828
  Transmission Date: 20151125
  Serious: Yes (Life-Threatening, Other)
  Sender: FDA-Public Use
  Company Number: US-RB PHARMACEUTICALS LIMITED-RB-082353-2015

PATIENT
  Age: 27 Year
  Sex: Male

DRUGS (1)
  1. SUBOXONE [Suspect]
     Active Substance: BUPRENORPHINE HYDROCHLORIDE\NALOXONE HYDROCHLORIDE
     Indication: DRUG DEPENDENCE
     Dosage: TAKING SMALL PIECES OF THE FILM, DAILY (ABOUT ONE MONTH)
     Route: 060
     Dates: start: 201507, end: 201508

REACTIONS (8)
  - Depression [Not Recovered/Not Resolved]
  - Substance abuse [Recovered/Resolved]
  - Suicidal ideation [Not Recovered/Not Resolved]
  - Product preparation error [Recovered/Resolved]
  - Impaired work ability [Not Recovered/Not Resolved]
  - Therapy cessation [Recovered/Resolved]
  - Insomnia [Not Recovered/Not Resolved]
  - Drug withdrawal syndrome [Not Recovered/Not Resolved]

NARRATIVE: CASE EVENT DATE: 201507
